FAERS Safety Report 6671813-0 (Version None)
Quarter: 2010Q2

REPORT INFORMATION
  Report Type: 
  Country: None (occurrence: None)
  Receive Date: 20100407
  Receipt Date: 20100326
  Transmission Date: 20101027
  Serious: Yes (Hospitalization)
  Sender: FDA-Public Use
  Company Number: US-ROCHE-694627

PATIENT
  Age: 56 Year
  Sex: Female
  Weight: 55.9 kg

DRUGS (5)
  1. CAPECITABINE [Suspect]
     Indication: PANCREATIC CARCINOMA METASTATIC
     Route: 048
     Dates: start: 20100104, end: 20100106
  2. CAPECITABINE [Suspect]
     Route: 048
     Dates: start: 20100118, end: 20100120
  3. SORAFENIB [Suspect]
     Route: 048
     Dates: start: 20100104, end: 20100131
  4. OXALIPLATIN [Suspect]
     Route: 041
     Dates: start: 20100104, end: 20100104
  5. OXALIPLATIN [Suspect]
     Route: 041
     Dates: start: 20100118, end: 20100118

REACTIONS (6)
  - ASCITES [None]
  - HYPOALBUMINAEMIA [None]
  - ILEUS PARALYTIC [None]
  - INFECTION [None]
  - MALIGNANT NEOPLASM PROGRESSION [None]
  - THROMBOCYTOPENIA [None]
